FAERS Safety Report 9784230 (Version 3)
Quarter: 2014Q1

REPORT INFORMATION
  Report Type: Spontaneous
  Country: US (occurrence: US)
  Receive Date: 20131226
  Receipt Date: 20140304
  Transmission Date: 20141002
  Serious: Yes (Hospitalization, Other)
  Sender: FDA-Public Use
  Company Number: US-BAXTER-2013BAX052495

PATIENT
  Sex: Male

DRUGS (4)
  1. DIANEAL PD2 [Suspect]
     Indication: PERITONEAL DIALYSIS
     Route: 033
     Dates: end: 20131125
  2. DIANEAL PD2 [Suspect]
     Route: 033
     Dates: start: 20131202
  3. DIANEAL PD2 [Suspect]
     Indication: PERITONEAL DIALYSIS
     Route: 033
     Dates: end: 20131125
  4. DIANEAL PD2 [Suspect]
     Route: 033
     Dates: start: 20131202

REACTIONS (3)
  - Viral infection [Recovered/Resolved]
  - Peritonitis bacterial [Recovered/Resolved]
  - Dehydration [Recovered/Resolved]
